FAERS Safety Report 4887467-X (Version None)
Quarter: 2006Q1

REPORT INFORMATION
  Report Type: 
  Country: None (occurrence: None)
  Receive Date: 20060117
  Receipt Date: 20060111
  Transmission Date: 20060701
  Serious: Yes (Hospitalization)
  Sender: FDA-Public Use
  Company Number: HQWYE309812JAN06

PATIENT
  Age: 48 Year
  Sex: Female

DRUGS (16)
  1. EFFEXOR [Suspect]
     Dosage: 450 MG 1X PER 1 DAY; ORAL
     Route: 048
     Dates: end: 20050809
  2. ALPRAZOLAM [Suspect]
     Dosage: 5 MG AS NEEDED; ORAL
     Route: 048
     Dates: end: 20050809
  3. ARAVA [Suspect]
     Dosage: 20 MG 1X PER 1 DAY; ORAL
     Route: 048
     Dates: start: 20050112, end: 20050809
  4. ARTANE [Suspect]
     Dosage: 1 MG, 1X PER 1 DAY; ORAL
     Route: 048
     Dates: end: 20050809
  5. KLACID (CLARITHROMYCIN, ) [Suspect]
     Dosage: 500 MG 1X PER 1 DAY; ORAL
     Route: 048
     Dates: start: 20050731, end: 20050808
  6. METHOTREXATE [Suspect]
     Dosage: 20 MG 1X PER 1 WK; ORAL
     Route: 048
     Dates: end: 20050809
  7. MOBIC [Suspect]
     Dosage: 7.5 MG 1X PER 1 DAY; ORAL
     Route: 048
     Dates: end: 20050809
  8. PLAQUENIL (HYDROCYCHLOROQUINE PHOSPHATE, ) [Suspect]
     Dosage: 200 MG 1X PER 1 DAY; ORAL
     Route: 048
     Dates: start: 20011212, end: 20050809
  9. ZYPREXA [Suspect]
     Dosage: 10 MG 1X PER 1 DAY; ORAL
     Route: 048
     Dates: end: 20050809
  10. AMOXIL ^BEECHAM PHARM^ (AMOXICILLIN) [Concomitant]
  11. FOSINOPRIL SODIUM [Concomitant]
  12. HYDROCHLOROTHIAZIDE [Concomitant]
  13. FOLIC ACID [Concomitant]
  14. CENTRUM (MULTIVITAMIN/MULTIMINERAL) [Concomitant]
  15. OSTELIN (ERGOCALCIFEROL) [Concomitant]
  16. NEXIUM [Concomitant]

REACTIONS (2)
  - HEPATITIS FULMINANT [None]
  - INTERNATIONAL NORMALISED RATIO INCREASED [None]
